FAERS Safety Report 24068419 (Version 1)
Quarter: 2024Q3

REPORT INFORMATION
  Report Type: Spontaneous
  Country: DE (occurrence: DE)
  Receive Date: 20240710
  Receipt Date: 20240710
  Transmission Date: 20241016
  Serious: Yes (Congenital Anomaly, Other)
  Sender: CELLTRION
  Company Number: DE-CELLTRION INC.-2024DE016249

PATIENT

DRUGS (10)
  1. INFLIXIMAB [Suspect]
     Active Substance: INFLIXIMAB
     Indication: Ankylosing spondylitis
     Dosage: 120 MG EVERY 2 WEEKS (ADDITIONAL INFO: ; ROUTE:064 0. - 33.2. GESTATIONAL WEEK)
     Route: 064
     Dates: start: 20210901, end: 20220422
  2. URSODIOL [Concomitant]
     Active Substance: URSODIOL
     Indication: Pruritus
     Dosage: ADDITIONAL INFO: ; ROUTE:064 TRIMESTER: UNKNOWN TRIMESTER
     Route: 064
  3. BETAMETHASONE [Concomitant]
     Active Substance: BETAMETHASONE\BETAMETHASONE DIPROPIONATE
     Indication: Maternal therapy to enhance foetal lung maturity
     Dosage: ADDITIONAL INFO: ; ROUTE:064 TRIMESTER: UNKNOWN TRIMESTER
     Route: 064
  4. ACETAMINOPHEN [Concomitant]
     Active Substance: ACETAMINOPHEN
     Indication: Pain
     Dosage: IF REQUIRED; AS NECESSARY (ADDITIONAL INFO: ; ROUTE:064 0. - 33.2. GESTATIONAL WEEK)
     Route: 064
     Dates: start: 20210901, end: 20220422
  5. ELEVIT VITAMINE B9 [Concomitant]
     Indication: Prophylaxis of neural tube defect
     Dosage: ADDITIONAL INFO: ; ROUTE:064 0. - 33.2. GESTATIONAL WEEK
     Route: 064
     Dates: start: 20210901, end: 20220422
  6. CEFUROXIME SODIUM [Concomitant]
     Active Substance: CEFUROXIME SODIUM
     Indication: Abscess
     Dosage: ADDITIONAL INFO: ; ROUTE:064 TRIMESTER: UNKNOWN TRIMESTER
     Route: 064
  7. CETIRIZINE [Concomitant]
     Active Substance: CETIRIZINE HYDROCHLORIDE
     Indication: Pruritus
     Dosage: ADDITIONAL INFO: ; ROUTE:064 TRIMESTER: UNKNOWN TRIMESTER
     Route: 064
  8. PROGESTERONE [Concomitant]
     Active Substance: PROGESTERONE
     Indication: Assisted fertilisation
     Dosage: ADDITIONAL INFO: ; ROUTE:064 ; PARENT ROUTE: [] TRIMESTER: PRECONCEPTIONAL
     Route: 064
  9. CHORIOGONADOTROPIN ALFA [Concomitant]
     Active Substance: CHORIOGONADOTROPIN ALFA
     Indication: Assisted fertilisation
     Dosage: ADDITIONAL INFO: ; ROUTE:064 TRIMESTER: PRECONCEPTIONAL
     Route: 064
  10. CLOMIPHENE [Concomitant]
     Active Substance: CLOMIPHENE
     Indication: Assisted fertilisation
     Dosage: ADDITIONAL INFO: ; ROUTE:064 TRIMESTER: PRECONCEPTIONAL
     Route: 064

REACTIONS (9)
  - Congenital choroid plexus cyst [Recovering/Resolving]
  - Premature baby [Recovered/Resolved]
  - Hydrocele [Unknown]
  - Congenital hydronephrosis [Unknown]
  - Atrial septal defect [Unknown]
  - Thrombocytopenia neonatal [Recovered/Resolved]
  - Neonatal respiratory distress syndrome [Recovered/Resolved]
  - Leukopenia neonatal [Recovered/Resolved]
  - Foetal exposure during pregnancy [Unknown]

NARRATIVE: CASE EVENT DATE: 20220401
